FAERS Safety Report 21674841 (Version 1)
Quarter: 2022Q4

REPORT INFORMATION
  Report Type: Spontaneous
  Country: US (occurrence: US)
  Receive Date: 20221202
  Receipt Date: 20221202
  Transmission Date: 20230113
  Serious: No
  Sender: FDA-Public Use
  Company Number: US-SANOFI-01387670

PATIENT
  Sex: Female

DRUGS (1)
  1. TOUJEO MAX [Suspect]
     Active Substance: INSULIN GLARGINE
     Indication: Diabetes mellitus
     Dosage: DOSAGE IS DIALED IN 2 UNIT INCREMENTS, SO SHE IS NOT SURE IF SHE SHOULD BE DIALING TO 22 UNITS (HER
     Dates: start: 2022

REACTIONS (2)
  - Blood glucose abnormal [Unknown]
  - Dizziness [Unknown]
